FAERS Safety Report 7199848-2 (Version None)
Quarter: 2010Q4

REPORT INFORMATION
  Report Type: 
  Country: None (occurrence: None)
  Receive Date: 20101228
  Receipt Date: 20101208
  Transmission Date: 20110411
  Serious: No
  Sender: FDA-Public Use
  Company Number: US-B.I. PHARMACEUTICALS,INC./RIDGEFIELD-2010-BP-14125BP

PATIENT
  Sex: Female

DRUGS (9)
  1. PRADAXA [Suspect]
     Indication: ATRIAL FIBRILLATION
     Dosage: 300 MG
     Route: 048
     Dates: start: 20101201
  2. METOPROLOL TARTRATE [Concomitant]
     Indication: HYPERTENSION
     Dosage: 25 MG
     Route: 048
  3. ACIPHEX [Concomitant]
     Dosage: 20 MG
     Route: 048
  4. FLECAINIDE [Concomitant]
     Indication: ATRIAL FIBRILLATION
     Dosage: 200 MG
     Route: 048
  5. LEXAPRO [Concomitant]
     Indication: DEPRESSION
     Dosage: 40 MG
     Route: 048
  6. CLONAZEPAM [Concomitant]
     Indication: RESTLESS LEGS SYNDROME
     Dosage: 1 MG
     Route: 048
  7. LIPITOR [Concomitant]
     Indication: BLOOD CHOLESTEROL INCREASED
     Dosage: 40 MG
     Route: 048
  8. ZETIA [Concomitant]
     Indication: BLOOD CHOLESTEROL INCREASED
     Dosage: 10 MG
     Route: 048
  9. SYNTHROID [Concomitant]
     Indication: HYPOTHYROIDISM
     Dosage: 137 MCG
     Route: 048

REACTIONS (2)
  - DYSPEPSIA [None]
  - OESOPHAGEAL PAIN [None]
